FAERS Safety Report 14404413 (Version 3)
Quarter: 2018Q3

REPORT INFORMATION
  Report Type: Spontaneous
  Country: JP (occurrence: JP)
  Receive Date: 20180117
  Receipt Date: 20180716
  Transmission Date: 20181010
  Serious: Yes (Death, Other)
  Sender: FDA-Public Use
  Company Number: JP-NOVOPROD-580529

PATIENT
  Age: 70 Year
  Sex: Male
  Weight: 45 kg

DRUGS (9)
  1. NOVOSEVEN [Suspect]
     Active Substance: COAGULATION FACTOR VIIA RECOMBINANT HUMAN
     Indication: HAEMORRHAGE SUBCUTANEOUS
     Dosage: 15 MG
     Route: 042
     Dates: start: 20171229, end: 20180101
  2. NOVOSEVEN [Suspect]
     Active Substance: COAGULATION FACTOR VIIA RECOMBINANT HUMAN
     Indication: GASTROINTESTINAL HAEMORRHAGE
  3. PREDONINE [Concomitant]
     Active Substance: PREDNISOLONE
     Indication: FACTOR VIII DEFICIENCY
     Dosage: 40 MG, QD
     Route: 065
     Dates: start: 20171226, end: 20180101
  4. GLUCONSAN K [Concomitant]
     Active Substance: POTASSIUM GLUCONATE
     Indication: HYPOKALAEMIA
     Dosage: 3 G, QD
     Route: 048
     Dates: start: 20171228, end: 20171230
  5. SULBACILLIN [Concomitant]
     Active Substance: AMPICILLIN SODIUM\SULBACTAM SODIUM
     Indication: PNEUMONIA ASPIRATION
     Dosage: 12 TO 9 TO 3G/DAY
     Route: 042
     Dates: start: 20171230, end: 20180101
  6. OMEPRAZOLE. [Concomitant]
     Active Substance: OMEPRAZOLE
     Indication: FACTOR VIII DEFICIENCY
     Dosage: 40 MG, QD
     Route: 065
     Dates: start: 20180101
  7. MEROPEN                            /01250501/ [Concomitant]
     Active Substance: MEROPENEM
     Indication: PNEUMONIA ASPIRATION
     Dosage: 1000 MG, QD
     Route: 065
     Dates: start: 20180101, end: 20180101
  8. TRANSAMIN [Concomitant]
     Active Substance: TRANEXAMIC ACID
     Indication: FACTOR VIII DEFICIENCY
     Dosage: 1500 TO 1000MG/DAY
     Route: 065
     Dates: start: 20171230, end: 20180101
  9. NOVOSEVEN [Suspect]
     Active Substance: COAGULATION FACTOR VIIA RECOMBINANT HUMAN
     Indication: ACQUIRED HAEMOPHILIA
     Dosage: 5 MG
     Route: 042
     Dates: start: 20171228

REACTIONS (2)
  - Pneumonia aspiration [Unknown]
  - Cardiac failure [Fatal]

NARRATIVE: CASE EVENT DATE: 20171230
